FAERS Safety Report 8463538 (Version 3)
Quarter: 2012Q4

REPORT INFORMATION
  Report Type: 
  Country: US (occurrence: US)
  Receive Date: 20120316
  Receipt Date: 20121001
  Transmission Date: 20130627
  Serious: Yes (Hospitalization, Other)
  Sender: FDA-Public Use
  Company Number: US-BAYER-2012-023456

PATIENT
  Age: 37 Year
  Sex: Female
  Weight: 63.49 kg

DRUGS (7)
  1. YAZ [Suspect]
     Indication: MENORRHAGIA
     Dosage: UNK
     Dates: start: 200909, end: 200912
  2. YAZ [Suspect]
     Indication: MENORRHAGIA
     Dosage: UNK
     Dates: start: 200909, end: 200912
  3. LEXAPRO [Concomitant]
  4. LEVAQUIN [Concomitant]
     Indication: PNEUMONIA
  5. VICODIN [Concomitant]
  6. LORAZEPAM [Concomitant]
     Indication: ANXIETY
  7. OMEPRAZOLE [Concomitant]

REACTIONS (15)
  - Pulmonary embolism [None]
  - Cholecystectomy [None]
  - Pneumonia [None]
  - Dyspnoea [None]
  - Pain [None]
  - General physical health deterioration [None]
  - Anxiety [None]
  - Anhedonia [None]
  - Emotional distress [None]
  - Mental disorder [None]
  - Insomnia [None]
  - Fear of disease [None]
  - Chest pain [None]
  - Back pain [None]
  - Dyspnoea [None]
